FAERS Safety Report 7034077-4 (Version None)
Quarter: 2010Q4

REPORT INFORMATION
  Report Type: 
  Country: None (occurrence: None)
  Receive Date: 20101006
  Receipt Date: 20100921
  Transmission Date: 20110411
  Serious: Yes (Death)
  Sender: FDA-Public Use
  Company Number: FKO201000402

PATIENT
  Age: 57 Year
  Sex: Female

DRUGS (5)
  1. ETOPOSIDE [Suspect]
     Indication: ACUTE LYMPHOCYTIC LEUKAEMIA
     Dosage: 200 MG/M2 (200 MG/M2, DAYS 8-10)
  2. MITOXANTRONE [Suspect]
     Indication: ACUTE LYMPHOCYTIC LEUKAEMIA
     Dosage: 12 MG/M2 (12 MG/M2, DAYS 1-3)
  3. CYTARABINE [Suspect]
     Indication: ACUTE LYMPHOCYTIC LEUKAEMIA
     Dosage: 500 MG/M2 (500 MG/M2, DAYS 1-3 + 8-10), 200 MG/M2 (200 MG/M2, DAYS 1-5)
  4. IDARUBICIN HCL [Suspect]
     Indication: ACUTE LYMPHOCYTIC LEUKAEMIA
     Dosage: 8 MG/M2 *8 MG/M2, DAYS 1-3)
  5. FLUDARABINE PHOSPHATE [Concomitant]

REACTIONS (4)
  - BACTERIAL INFECTION [None]
  - FEBRILE NEUTROPENIA [None]
  - HEPATITIS B [None]
  - LEUKAEMIA RECURRENT [None]
